FAERS Safety Report 8371142 (Version 2)
Quarter: 2013Q1

REPORT INFORMATION
  Report Type: Spontaneous
  Country: US (occurrence: US)
  Receive Date: 20120129
  Receipt Date: 20130131
  Transmission Date: 20140127
  Serious: No
  Sender: FDA-Public Use
  Company Number: US-ABBOTT-11P-163-0871035-00

PATIENT
  Age: 64 None
  Sex: Female

DRUGS (9)
  1. HUMIRA [Suspect]
     Indication: RHEUMATOID ARTHRITIS
     Route: 058
  2. MELOXICAM [Concomitant]
     Indication: PAIN
     Dosage: AS REQUIRED
  3. ZOLOFT [Concomitant]
     Indication: DEPRESSION
  4. ZOLOFT [Concomitant]
     Indication: ANXIETY
  5. PREDNISONE [Concomitant]
     Indication: RHEUMATOID ARTHRITIS
     Dosage: ALTERNATING DAYS 2.5 MG AND 5 MG
  6. LEUCOVORIN [Concomitant]
     Indication: PRODUCT USED FOR UNKNOWN INDICATION
     Dosage: ON SUNDAYS
  7. PREMPRO [Concomitant]
     Indication: MENOPAUSE
     Dosage: 0.3MG/1.5 MG EVERY OTHER DAY (WAS DESCREASED 11 MONTHS AGO TO WEAN OFF HORMONE THERAPY)
  8. PRILOSEC [Concomitant]
     Indication: GASTROOESOPHAGEAL REFLUX DISEASE
  9. METHOTREXATE [Concomitant]
     Indication: PRODUCT USED FOR UNKNOWN INDICATION
     Dosage: 2 TABS ON SATURDAYS AND 2 TABS ON SUNDAYS (WAS DISCONTINUED ON SUNDAYS TWO WEEKS AGO)

REACTIONS (4)
  - Incorrect dose administered [Recovered/Resolved]
  - Incorrect dose administered [Recovered/Resolved]
  - Injection site haemorrhage [Recovered/Resolved]
  - Injection site pain [Not Recovered/Not Resolved]
